FAERS Safety Report 25747624 (Version 3)
Quarter: 2025Q4

REPORT INFORMATION
  Report Type: Report from Study
  Country: EU (occurrence: EU)
  Receive Date: 20250901
  Receipt Date: 20251126
  Transmission Date: 20260117
  Serious: Yes (Hospitalization, Other)
  Sender: NOVARTIS
  Company Number: EU-002147023-NVSC2025DE132270

PATIENT
  Age: 87 Year
  Sex: Male
  Weight: 60 kg

DRUGS (5)
  1. PLUVICTO [Suspect]
     Active Substance: LUTETIUM LU-177 VIPIVOTIDE TETRAXETAN
     Indication: Hormone-refractory prostate cancer
     Dosage: 7400 MBQ (BASELINE / CYCLE 1)
     Route: 042
     Dates: start: 20250611, end: 20250623
  2. PLUVICTO [Suspect]
     Active Substance: LUTETIUM LU-177 VIPIVOTIDE TETRAXETAN
     Dosage: UNK (ADDITIONAL VIAL)
     Route: 042
     Dates: start: 20250624
  3. PLUVICTO [Suspect]
     Active Substance: LUTETIUM LU-177 VIPIVOTIDE TETRAXETAN
     Dosage: 8500 MBQ (CYCLE 2)
     Route: 042
     Dates: start: 20250724
  4. PLUVICTO [Suspect]
     Active Substance: LUTETIUM LU-177 VIPIVOTIDE TETRAXETAN
     Dosage: 7400 MBQ (CYCLE 3)
     Route: 042
     Dates: start: 20250902, end: 20250902
  5. PLUVICTO [Suspect]
     Active Substance: LUTETIUM LU-177 VIPIVOTIDE TETRAXETAN
     Dosage: 7400 MBQ (CYCLE 4)
     Route: 042
     Dates: start: 20251021, end: 20251021

REACTIONS (2)
  - Extra dose administered [Recovered/Resolved]
  - Inappropriate schedule of product administration [Recovered/Resolved]

NARRATIVE: CASE EVENT DATE: 20250723
